FAERS Safety Report 9951476 (Version 2)
Quarter: 2014Q1

REPORT INFORMATION
  Report Type: Report from Study
  Country: BR (occurrence: BR)
  Receive Date: 20140304
  Receipt Date: 20140310
  Transmission Date: 20141002
  Serious: Yes (Life-Threatening, Other)
  Sender: FDA-Public Use
  Company Number: PHHY2014BR024667

PATIENT
  Sex: Female
  Weight: 97 kg

DRUGS (2)
  1. DIOVAN HCT [Suspect]
     Indication: HYPERTENSION
     Dosage: 1 DF (VALS 320 MG / HYDR 25 MG), DAILY
     Route: 048
     Dates: start: 2011
  2. CAPTOPRIL [Suspect]
     Dosage: 2 DF, BID (2 IN THE MORNING AND 2 AT NIGHT)

REACTIONS (17)
  - Haemorrhage [Unknown]
  - Apparent death [Unknown]
  - Menorrhagia [Unknown]
  - Benign neoplasm [Unknown]
  - Ventricular hypertrophy [Unknown]
  - Left ventricular hypertrophy [Unknown]
  - Hypertension [Unknown]
  - Hyperhidrosis [Unknown]
  - Obesity [Unknown]
  - Feeling abnormal [Unknown]
  - Drug intolerance [Unknown]
  - Dehydration [Unknown]
  - Asthenia [Unknown]
  - Headache [Unknown]
  - Nasopharyngitis [Unknown]
  - Hypotension [Unknown]
  - Wrong technique in drug usage process [Unknown]
